FAERS Safety Report 5351005-8 (Version None)
Quarter: 2007Q2

REPORT INFORMATION
  Report Type: 
  Country: None (occurrence: None)
  Receive Date: 20070608
  Receipt Date: 20070605
  Transmission Date: 20071010
  Serious: Yes (Hospitalization)
  Sender: FDA-Public Use
  Company Number: US-SANOFI-SYNTHELABO-A03200702343

PATIENT
  Sex: Female

DRUGS (7)
  1. AMBIEN [Suspect]
     Indication: INSOMNIA
     Route: 048
     Dates: start: 19970101, end: 20060810
  2. AMBIEN [Suspect]
     Route: 048
  3. MARIJUANA [Concomitant]
     Route: 055
  4. ALCOHOL [Concomitant]
     Dosage: UNK
     Route: 048
  5. PAXIL [Concomitant]
     Route: 048
  6. LORAZEPAM [Concomitant]
     Route: 048
     Dates: start: 20060817
  7. LAMICTAL [Concomitant]
     Route: 048
     Dates: start: 20060925

REACTIONS (5)
  - DEPRESSED MOOD [None]
  - EMOTIONAL DISTRESS [None]
  - OVERDOSE [None]
  - SLEEP WALKING [None]
  - SUICIDAL IDEATION [None]
